FAERS Safety Report 25483590 (Version 1)
Quarter: 2025Q2

REPORT INFORMATION
  Report Type: Spontaneous
  Country: US (occurrence: US)
  Receive Date: 20250626
  Receipt Date: 20250626
  Transmission Date: 20250717
  Serious: No
  Sender: ALMIRALL, LLC
  Company Number: US-ALMIRALL, LLC-2025AQU000012

PATIENT

DRUGS (1)
  1. CORDRAN [Suspect]
     Active Substance: FLURANDRENOLIDE
     Indication: Product used for unknown indication
     Route: 061

REACTIONS (4)
  - Thermal burn [Unknown]
  - Keloid scar [Unknown]
  - Wound complication [Unknown]
  - Wound haemorrhage [Unknown]
